FAERS Safety Report 8869756 (Version 1)
Quarter: 2012Q4

REPORT INFORMATION
  Report Type: 
  Country: US (occurrence: US)
  Receive Date: 20121026
  Receipt Date: 20121026
  Transmission Date: 20130627
  Serious: No
  Sender: FDA-Public Use
  Company Number: US-AMGEN-USASP2012044154

PATIENT
  Sex: Female
  Weight: 89.8 kg

DRUGS (10)
  1. ENBREL [Suspect]
     Indication: PRODUCT USED FOR UNKNOWN INDICATION
     Dosage: 50 mg/ml, qwk
     Route: 058
  2. AMLODIPINE [Concomitant]
     Dosage: 2.5 mg, UNK
  3. SIMVASTATIN [Concomitant]
     Dosage: 5 mg, UNK
  4. METOPROLOL [Concomitant]
     Dosage: 25 mg, UNK
  5. VITAMIN D /00107901/ [Concomitant]
     Dosage: 400 unit, UNK
  6. TRICOR                             /00090101/ [Concomitant]
     Dosage: 145 mg, UNK
  7. PANTOPRAZOLE [Concomitant]
     Dosage: 20 mg, UNK
  8. LEVOTHYROXIN [Concomitant]
     Dosage: 25 mug, UNK
  9. PROPOXYPHENE [Concomitant]
     Dosage: 100-325
  10. LEFLUNOMIDE [Concomitant]
     Dosage: 10 mg, UNK

REACTIONS (2)
  - Pneumonia [Recovered/Resolved]
  - Drug ineffective [Unknown]
